FAERS Safety Report 16951598 (Version 2)
Quarter: 2019Q4

REPORT INFORMATION
  Report Type: Spontaneous
  Country: US (occurrence: US)
  Receive Date: 20191023
  Receipt Date: 20191219
  Transmission Date: 20200122
  Serious: Yes (Death)
  Sender: FDA-Public Use
  Company Number: US-PFIZER INC-2019459037

PATIENT
  Age: 71 Year
  Sex: Female
  Weight: 79.37 kg

DRUGS (4)
  1. IBRANCE [Suspect]
     Active Substance: PALBOCICLIB
     Indication: LUNG CARCINOMA CELL TYPE UNSPECIFIED STAGE IV
     Dosage: 125 MG, UNK
  2. GABAPENTIN. [Concomitant]
     Active Substance: GABAPENTIN
     Dosage: 100 MG, 3X/DAY(1 EVERY 8 HRS)
  3. IBRANCE [Suspect]
     Active Substance: PALBOCICLIB
     Indication: BONE CANCER
     Dosage: 20 MG, UNK
     Dates: start: 201508
  4. OXYCODONE [Concomitant]
     Active Substance: OXYCODONE
     Dosage: UNK, 3X/DAY(10/325 2X DAY (1 EVERY 8 HRS))

REACTIONS (5)
  - Intestinal obstruction [Fatal]
  - Off label use [Unknown]
  - Diabetes mellitus [Fatal]
  - Product use in unapproved indication [Unknown]
  - Neoplasm progression [Fatal]

NARRATIVE: CASE EVENT DATE: 201508
